FAERS Safety Report 24769776 (Version 7)
Quarter: 2025Q3

REPORT INFORMATION
  Report Type: Spontaneous
  Country: US (occurrence: US)
  Receive Date: 20241224
  Receipt Date: 20250729
  Transmission Date: 20251021
  Serious: Yes (Hospitalization, Other)
  Sender: BIOVITRUM
  Company Number: US-BIOVITRUM-2024-US-016367

PATIENT
  Age: 74 Year
  Sex: Male
  Weight: 99 kg

DRUGS (7)
  1. VONJO [Suspect]
     Active Substance: PACRITINIB
     Indication: Myeloproliferative neoplasm
     Route: 048
     Dates: end: 20241218
  2. INQOVI [Suspect]
     Active Substance: CEDAZURIDINE\DECITABINE
     Indication: Myeloproliferative neoplasm
     Route: 048
     Dates: end: 20241218
  3. INQOVI [Suspect]
     Active Substance: CEDAZURIDINE\DECITABINE
     Route: 048
     Dates: start: 202410
  4. INQOVI [Suspect]
     Active Substance: CEDAZURIDINE\DECITABINE
     Route: 048
     Dates: end: 20250318
  5. INQOVI [Suspect]
     Active Substance: CEDAZURIDINE\DECITABINE
     Route: 048
  6. LEVOTHYROXINE [Concomitant]
     Active Substance: LEVOTHYROXINE
     Indication: Product used for unknown indication
  7. IRBESARTAN [Concomitant]
     Active Substance: IRBESARTAN
     Indication: Product used for unknown indication

REACTIONS (6)
  - Febrile neutropenia [Unknown]
  - Off label use [Recovered/Resolved]
  - Haemoglobin decreased [Recovering/Resolving]
  - Platelet count decreased [Recovering/Resolving]
  - White blood cell count decreased [Recovering/Resolving]
  - Underdose [Unknown]

NARRATIVE: CASE EVENT DATE: 20241218
